FAERS Safety Report 6498749-2 (Version None)
Quarter: 2009Q4

REPORT INFORMATION
  Report Type: 
  Country: None (occurrence: None)
  Receive Date: 20091215
  Receipt Date: 20091106
  Transmission Date: 20100525
  Serious: Yes (Other)
  Sender: FDA-Public Use
  Company Number: PHBS2001AU08362

PATIENT
  Sex: Male

DRUGS (2)
  1. CLOZARIL [Suspect]
     Dosage: 450 MG/DAY
     Route: 048
     Dates: start: 19970121, end: 20010813
  2. BACTRIM [Suspect]
     Dosage: 1 DF, BID
     Dates: start: 20010811

REACTIONS (3)
  - LEUKOPENIA [None]
  - LOWER RESPIRATORY TRACT INFECTION [None]
  - NEUTROPENIA [None]
